FAERS Safety Report 20999647 (Version 1)
Quarter: 2022Q2

REPORT INFORMATION
  Report Type: Spontaneous
  Country: US (occurrence: US)
  Receive Date: 20220623
  Receipt Date: 20220623
  Transmission Date: 20220721
  Serious: No
  Sender: FDA-Public Use
  Company Number: US-BAYER-2022A082084

PATIENT
  Sex: Female

DRUGS (3)
  1. MIRENA [Suspect]
     Active Substance: LEVONORGESTREL
     Indication: Rheumatoid arthritis
     Dosage: 20?G/DAY
     Route: 015
     Dates: start: 20180411
  2. MIRENA [Suspect]
     Active Substance: LEVONORGESTREL
     Indication: Intra-uterine contraceptive device insertion
  3. MIRENA [Suspect]
     Active Substance: LEVONORGESTREL
     Indication: Psoriatic arthropathy

REACTIONS (2)
  - Pruritus [None]
  - Skin burning sensation [Unknown]
